FAERS Safety Report 17050869 (Version 2)
Quarter: 2019Q4

REPORT INFORMATION
  Report Type: Spontaneous
  Country: US (occurrence: US)
  Receive Date: 20191120
  Receipt Date: 20191128
  Transmission Date: 20200122
  Serious: No
  Sender: FDA-Public Use
  Company Number: US-LUPIN PHARMACEUTICALS INC.-2019-06905

PATIENT
  Age: 78 Year
  Sex: Female
  Weight: 81.63 kg

DRUGS (1)
  1. LISINOPRIL TABLETS USP, 40MG [Suspect]
     Active Substance: LISINOPRIL
     Indication: BLOOD PRESSURE ABNORMAL
     Dosage: 40 MILLIGRAM, QD
     Route: 048
     Dates: start: 201904, end: 20190924

REACTIONS (1)
  - Antinuclear antibody positive [Unknown]

NARRATIVE: CASE EVENT DATE: 201907
